FAERS Safety Report 4946337-9 (Version None)
Quarter: 2006Q1

REPORT INFORMATION
  Report Type: 
  Country: None (occurrence: None)
  Receive Date: 20060316
  Receipt Date: 20060316
  Transmission Date: 20060701
  Serious: No
  Sender: FDA-Public Use
  Company Number: None

PATIENT
  Age: 51 Year
  Sex: Male
  Weight: 90.7194 kg

DRUGS (2)
  1. CYMBALTA [Suspect]
     Indication: DEPRESSION
     Dosage: 4 CAPSULES -120MG- ONCE DAILY PO
     Route: 048
     Dates: start: 20041201, end: 20060315
  2. CYMBALTA [Suspect]
     Indication: PAIN
     Dosage: 4 CAPSULES -120MG- ONCE DAILY PO
     Route: 048
     Dates: start: 20041201, end: 20060315

REACTIONS (4)
  - ERECTION INCREASED [None]
  - HYPERHIDROSIS [None]
  - MUSCLE SPASMS [None]
  - PAINFUL ERECTION [None]
